FAERS Safety Report 4313031-7 (Version None)
Quarter: 2004Q1

REPORT INFORMATION
  Report Type: 
  Country: None (occurrence: None)
  Receive Date: 20040305
  Receipt Date: 20040302
  Transmission Date: 20041129
  Serious: Yes (Life-Threatening, Hospitalization)
  Sender: FDA-Public Use
  Company Number: 7534

PATIENT
  Age: 81 Year
  Sex: Male

DRUGS (2)
  1. ACYCLOVIR [Suspect]
     Indication: HERPES ZOSTER
     Dosage: 10 MG/KG TID,  IV
     Route: 042
  2. VALACYCLOVIR HCL [Suspect]
     Indication: HERPES ZOSTER
     Dosage: 1000 MG TID , PO
     Route: 048

REACTIONS (5)
  - CEREBRAL ATROPHY [None]
  - COMA [None]
  - ENCEPHALITIS [None]
  - HAEMODIALYSIS [None]
  - NEUROTOXICITY [None]
